FAERS Safety Report 5914712-1 (Version None)
Quarter: 2008Q4

REPORT INFORMATION
  Report Type: 
  Country: None (occurrence: None)
  Receive Date: 20081010
  Receipt Date: 20080929
  Transmission Date: 20090506
  Serious: Yes (Other)
  Sender: FDA-Public Use
  Company Number: AT-JNJFOC-20070401062

PATIENT
  Sex: Female
  Weight: 80 kg

DRUGS (7)
  1. TOPAMAX [Suspect]
     Route: 048
     Dates: start: 20070323
  2. TOPAMAX [Suspect]
     Route: 048
     Dates: start: 20070323
  3. TOPAMAX [Suspect]
     Indication: EPILEPSY
     Route: 048
     Dates: start: 20070323
  4. ISOPTIN [Concomitant]
     Indication: TACHYCARDIA PAROXYSMAL
     Route: 048
  5. FRISIUM [Concomitant]
     Indication: UNEVALUABLE EVENT
     Route: 048
  6. DEPAKENE RETARD [Concomitant]
     Indication: EPILEPSY
     Route: 048
  7. NEUROTOP RETARD [Concomitant]
     Indication: EPILEPSY
     Route: 048

REACTIONS (3)
  - LACRIMATION INCREASED [None]
  - MACULOPATHY [None]
  - VISUAL ACUITY REDUCED [None]
